FAERS Safety Report 6280506-3 (Version None)
Quarter: 2009Q3

REPORT INFORMATION
  Report Type: 
  Country: None (occurrence: None)
  Receive Date: 20090724
  Receipt Date: 20080915
  Transmission Date: 20100115
  Serious: No
  Sender: FDA-Public Use
  Company Number: A0742688A

PATIENT
  Age: 69 Year
  Sex: Female

DRUGS (11)
  1. AVANDIA [Suspect]
     Dosage: 4MG PER DAY
     Route: 048
     Dates: start: 20031222, end: 20080418
  2. POTASSIUM CHLORIDE [Concomitant]
     Dosage: 1TAB PER DAY
     Route: 048
  3. LIQUIFILM [Concomitant]
     Dosage: 1DROP FOUR TIMES PER DAY
     Route: 047
  4. VYTORIN [Concomitant]
     Indication: BLOOD CHOLESTEROL INCREASED
  5. XANAX [Concomitant]
     Indication: ANXIETY
     Dosage: .25MG AS REQUIRED
     Route: 048
  6. GLIPIZIDE [Concomitant]
     Dosage: 10MG IN THE MORNING
     Route: 048
  7. UNSPECIFIED MEDICATION [Concomitant]
  8. METAGLIP [Concomitant]
     Dosage: 1TAB THREE TIMES PER DAY
     Route: 048
  9. LOMOTIL [Concomitant]
     Dosage: 1TAB AS REQUIRED
     Route: 048
  10. VITAMIN [Concomitant]
     Dosage: 1TAB PER DAY
     Route: 048
  11. JANUVIA [Concomitant]
     Dosage: 1TAB PER DAY
     Route: 048

REACTIONS (12)
  - ABDOMINAL DISTENSION [None]
  - ALOPECIA [None]
  - ASTHENIA [None]
  - CHEST DISCOMFORT [None]
  - DYSPEPSIA [None]
  - FATIGUE [None]
  - HEART RATE INCREASED [None]
  - NAUSEA [None]
  - OEDEMA PERIPHERAL [None]
  - VISION BLURRED [None]
  - VISUAL IMPAIRMENT [None]
  - WEIGHT INCREASED [None]
